FAERS Safety Report 12390663 (Version 4)
Quarter: 2016Q2

REPORT INFORMATION
  Report Type: Report from Study
  Country: RO (occurrence: RO)
  Receive Date: 20160520
  Receipt Date: 20160627
  Transmission Date: 20160815
  Serious: Yes (Death, Life-Threatening, Hospitalization, Disabling)
  Sender: FDA-Public Use
  Company Number: RO-ABBVIE-16P-135-1631057-00

PATIENT
  Age: 64 Year
  Sex: Male

DRUGS (10)
  1. FUROSEMID [Concomitant]
     Active Substance: FUROSEMIDE
     Indication: PRODUCT USED FOR UNKNOWN INDICATION
  2. EXVIERA [Suspect]
     Active Substance: DASABUVIR
     Indication: HEPATITIS C
  3. TERTENSIF [Concomitant]
     Indication: HYPERTENSION
     Route: 048
  4. SPIRONOLACTONE. [Concomitant]
     Active Substance: SPIRONOLACTONE
     Indication: PRODUCT USED FOR UNKNOWN INDICATION
     Route: 048
  5. EXVIERA [Suspect]
     Active Substance: DASABUVIR
     Indication: HEPATIC CIRRHOSIS
     Dosage: 1 IN THE MORNING AND 1 IN THE EVENING(1-0-1)
     Route: 048
     Dates: start: 20160314, end: 20160516
  6. MODERIBA [Suspect]
     Active Substance: RIBAVIRIN
     Indication: HEPATITIS C
  7. NORVASC [Concomitant]
     Active Substance: AMLODIPINE BESYLATE
     Indication: HYPERTENSION
     Dosage: 0.5 IN 1 DAY
     Route: 048
  8. VIEKIRAX [Suspect]
     Active Substance: OMBITASVIR\PARITAPREVIR\RITONAVIR
     Indication: HEPATIC CIRRHOSIS
     Dosage: 2 IN THE MORNING (2-0-0)
     Route: 048
     Dates: start: 20160314, end: 20160516
  9. VIEKIRAX [Suspect]
     Active Substance: OMBITASVIR\PARITAPREVIR\RITONAVIR
     Indication: HEPATITIS C
  10. MODERIBA [Suspect]
     Active Substance: RIBAVIRIN
     Indication: HEPATIC CIRRHOSIS
     Dosage: 3 IN THE MONRING AND 3 IN THE EVENING(3-0-3)
     Route: 048
     Dates: start: 20160314, end: 20160415

REACTIONS (15)
  - Peritonitis bacterial [Fatal]
  - Upper limb fracture [Unknown]
  - Flatulence [Unknown]
  - Hepatic failure [Fatal]
  - Enterocolitis [Recovering/Resolving]
  - Abdominal distension [Unknown]
  - Oedema peripheral [Unknown]
  - Generalised oedema [Fatal]
  - Ascites [Recovering/Resolving]
  - Vomiting [Unknown]
  - Hepatic failure [Fatal]
  - Coagulopathy [Recovering/Resolving]
  - Diarrhoea [Unknown]
  - Abdominal pain [Unknown]
  - Nausea [Unknown]

NARRATIVE: CASE EVENT DATE: 20160328
